FAERS Safety Report 25807388 (Version 1)
Quarter: 2025Q3

REPORT INFORMATION
  Report Type: Spontaneous
  Country: US (occurrence: None)
  Receive Date: 20250911
  Receipt Date: 20250911
  Transmission Date: 20251021
  Serious: Yes (Other)
  Sender: FDA-CTU
  Company Number: None

PATIENT
  Sex: Female

DRUGS (1)
  1. MI [Suspect]
     Active Substance: BENZALKONIUM CHLORIDE

REACTIONS (3)
  - Anaphylactic reaction [None]
  - Injury associated with device [None]
  - Device malfunction [None]

NARRATIVE: CASE EVENT DATE: 20250909
